FAERS Safety Report 22657774 (Version 1)
Quarter: 2023Q2

REPORT INFORMATION
  Report Type: Spontaneous
  Country: ES (occurrence: ES)
  Receive Date: 20230630
  Receipt Date: 20230630
  Transmission Date: 20230722
  Serious: Yes (Life-Threatening, Hospitalization, Other)
  Sender: FDA-Public Use
  Company Number: None

PATIENT
  Age: 68 Year
  Sex: Male
  Weight: 64 kg

DRUGS (5)
  1. DOXORUBICIN [Suspect]
     Active Substance: DOXORUBICIN
     Indication: Chronic lymphocytic leukaemia
     Dosage: 45 MG, 1 TOTAL (202A)
     Route: 042
     Dates: start: 20230525, end: 20230525
  2. CYCLOPHOSPHAMIDE [Suspect]
     Active Substance: CYCLOPHOSPHAMIDE
     Indication: Chronic lymphocytic leukaemia
     Dosage: 716 MG, 1 TOTAL (120A)
     Route: 042
     Dates: start: 20230525, end: 20230525
  3. VINCRISTINE [Suspect]
     Active Substance: VINCRISTINE
     Indication: Chronic lymphocytic leukaemia
     Dosage: 1 MG, 1 TOTAL (809A)
     Route: 042
     Dates: start: 20230525, end: 20230525
  4. RITUXIMAB [Suspect]
     Active Substance: RITUXIMAB
     Indication: Chronic lymphocytic leukaemia
     Dosage: 673 MG, 1 TOTAL (2814A)
     Route: 042
     Dates: start: 20230525, end: 20230525
  5. PREDNISONE [Concomitant]
     Active Substance: PREDNISONE
     Indication: Chronic lymphocytic leukaemia
     Dosage: 10MG/24H, THE FIRST FIVE DAYS (886A)
     Route: 048
     Dates: start: 20230525, end: 20230529

REACTIONS (2)
  - Febrile neutropenia [Recovered/Resolved]
  - Lower respiratory tract infection [Recovered/Resolved]

NARRATIVE: CASE EVENT DATE: 20230531
